FAERS Safety Report 7686298-5 (Version None)
Quarter: 2011Q3

REPORT INFORMATION
  Report Type: 
  Country: None (occurrence: None)
  Receive Date: 20110816
  Receipt Date: 20110608
  Transmission Date: 20111222
  Serious: No
  Sender: FDA-Public Use
  Company Number: US-GLAXOSMITHKLINE-A0930723A

PATIENT
  Age: 54 Year
  Sex: Male

DRUGS (1)
  1. TAGAMET HB 200 [Suspect]
     Indication: DYSPEPSIA
     Route: 048
     Dates: start: 20080101

REACTIONS (3)
  - BURNING SENSATION [None]
  - SKIN EXFOLIATION [None]
  - DRUG ADMINISTRATION ERROR [None]
